FAERS Safety Report 7725166-7 (Version None)
Quarter: 2011Q3

REPORT INFORMATION
  Report Type: 
  Country: None (occurrence: None)
  Receive Date: 20110901
  Receipt Date: 20110825
  Transmission Date: 20111222
  Serious: Yes (Hospitalization, Disabling, Other)
  Sender: FDA-Public Use
  Company Number: US-MERCK-1106USA02274

PATIENT
  Age: 59 Year
  Sex: Female
  Weight: 101 kg

DRUGS (20)
  1. DOXYCYCLINE [Concomitant]
     Route: 065
     Dates: end: 20110613
  2. SOLAL BI EST [Concomitant]
     Indication: HORMONE REPLACEMENT THERAPY
     Route: 065
  3. LIOTRIX [Concomitant]
     Route: 065
  4. SYMBICORT [Concomitant]
     Indication: ASTHMA
     Route: 065
     Dates: end: 20110617
  5. VITAMINS (UNSPECIFIED) [Concomitant]
     Route: 065
  6. OMEGA-3 MARINE TRIGLYCERIDES [Concomitant]
     Route: 065
  7. STROMECTOL [Suspect]
     Indication: NEMATODIASIS
     Dosage: STRENGTH 3MG
     Route: 048
     Dates: start: 20110531, end: 20110601
  8. ASCORBIC ACID [Concomitant]
     Route: 065
  9. PRISTIQ [Concomitant]
     Indication: DEPRESSION
     Route: 065
     Dates: end: 20110613
  10. VITAMIN D (UNSPECIFIED) [Concomitant]
     Route: 065
  11. PRASTERONE [Concomitant]
     Route: 065
  12. WELCHOL [Concomitant]
     Indication: DETOXIFICATION
     Route: 065
  13. ACTOS [Concomitant]
     Indication: DETOXIFICATION
     Route: 065
     Dates: end: 20110630
  14. PROBIOTICS (UNSPECIFIED) [Concomitant]
     Route: 065
  15. STROMECTOL [Suspect]
     Indication: STRONGYLOIDIASIS
     Dosage: STRENGTH 3MG
     Route: 048
     Dates: start: 20110531, end: 20110601
  16. PATADAY [Concomitant]
     Indication: EYE ALLERGY
     Route: 065
  17. SINGULAIR [Concomitant]
     Indication: ASTHMA
     Route: 048
  18. POTASSIUM CITRATE [Concomitant]
     Route: 065
  19. PROGESTERONE [Concomitant]
     Route: 065
  20. MELATONIN [Concomitant]
     Route: 065

REACTIONS (37)
  - SEDATION [None]
  - FEELING COLD [None]
  - SOMNOLENCE [None]
  - DIZZINESS [None]
  - HYPERTENSION [None]
  - ASTHMA [None]
  - CHILLS [None]
  - FEELING DRUNK [None]
  - BLOOD POTASSIUM DECREASED [None]
  - FATIGUE [None]
  - MUSCLE TWITCHING [None]
  - SENSATION OF HEAVINESS [None]
  - DYSGEUSIA [None]
  - BACK PAIN [None]
  - NYSTAGMUS [None]
  - MOOD ALTERED [None]
  - CHEST PAIN [None]
  - COUGH [None]
  - HEADACHE [None]
  - PYREXIA [None]
  - PALPITATIONS [None]
  - CONSTIPATION [None]
  - TACHYCARDIA [None]
  - PAIN IN EXTREMITY [None]
  - COXSACKIE VIRUS TEST POSITIVE [None]
  - ORTHOSTATIC HYPOTENSION [None]
  - NEURALGIA [None]
  - VERTIGO [None]
  - PARAESTHESIA [None]
  - LOSS OF CONSCIOUSNESS [None]
  - PAIN IN JAW [None]
  - INAPPROPRIATE SCHEDULE OF DRUG ADMINISTRATION [None]
  - DYSPNOEA [None]
  - AFFECT LABILITY [None]
  - TREMOR [None]
  - OROPHARYNGEAL PAIN [None]
  - CONFUSIONAL STATE [None]
